FAERS Safety Report 9255510 (Version 4)
Quarter: 2013Q3

REPORT INFORMATION
  Report Type: Spontaneous
  Country: US (occurrence: US)
  Receive Date: 20130425
  Receipt Date: 20130723
  Transmission Date: 20140515
  Serious: Yes (Other)
  Sender: FDA-Public Use
  Company Number: US-ALLERGAN-1304745US

PATIENT
  Age: 83 Year
  Sex: Male
  Weight: 61.22 kg

DRUGS (16)
  1. COMBIGAN[R] [Suspect]
     Indication: GLAUCOMA
     Dosage: 2 GTT, BID
     Route: 047
     Dates: start: 20130225, end: 20130318
  2. COMBIGAN[R] [Suspect]
     Indication: AGE-RELATED MACULAR DEGENERATION
     Dosage: UNK
     Route: 047
  3. COMBIGAN[R] [Suspect]
     Indication: INTRAOCULAR PRESSURE INCREASED
  4. BRIMONIDINE TARTRATE, 0.2% [Concomitant]
     Indication: PRODUCT USED FOR UNKNOWN INDICATION
     Dosage: 1 GTT, Q12H
  5. TRAVATAN [Concomitant]
     Indication: GLAUCOMA
     Dosage: 1 GTT, QHS
  6. FUROSEMIDE [Concomitant]
     Indication: HYPERTENSION
     Dosage: 20 MG, QD
     Route: 048
  7. CARVEDILOL [Concomitant]
     Indication: CARDIAC DISORDER
     Dosage: 25 MG, QAM
  8. CHOLESTEROL MEDICATION NOS [Concomitant]
     Indication: BLOOD CHOLESTEROL
  9. BENICAR [Concomitant]
     Indication: HYPERTENSION
     Dosage: 20 MG, PRN
  10. PRESERVISION LUTEIN EYE VITA.+MIN.SUP.SOFTG. [Concomitant]
     Indication: PRODUCT USED FOR UNKNOWN INDICATION
  11. CENTRUM SILVER [Concomitant]
     Indication: PRODUCT USED FOR UNKNOWN INDICATION
  12. OCUVITE [Concomitant]
     Indication: VITAMIN SUPPLEMENTATION
     Dosage: 1 GTT, UNK
  13. LAXATIVE [Concomitant]
     Indication: PRODUCT USED FOR UNKNOWN INDICATION
     Dosage: 2, QHS
  14. ASA [Concomitant]
     Indication: PRODUCT USED FOR UNKNOWN INDICATION
     Dosage: 1/4 OF A REGULAR ONE
  15. CRESTOR [Concomitant]
     Indication: BLOOD CHOLESTEROL
     Dosage: 5 MG, QD
     Route: 048
  16. ONE A DAY [Concomitant]
     Indication: PRODUCT USED FOR UNKNOWN INDICATION
     Dosage: 1 TABLET, QD

REACTIONS (4)
  - Epistaxis [Recovered/Resolved]
  - Intraocular pressure increased [Unknown]
  - Fatigue [Unknown]
  - Vision blurred [Not Recovered/Not Resolved]
